FAERS Safety Report 23849880 (Version 1)
Quarter: 2024Q2

REPORT INFORMATION
  Report Type: Spontaneous
  Country: US (occurrence: None)
  Receive Date: 20240513
  Receipt Date: 20240513
  Transmission Date: 20240715
  Serious: Yes (Hospitalization)
  Sender: FDA-Public Use
  Company Number: None

PATIENT
  Age: 73 Year
  Sex: Male
  Weight: 83 kg

DRUGS (1)
  1. GABAPENTIN [Suspect]
     Active Substance: GABAPENTIN
     Indication: Neuropathy peripheral
     Dosage: FREQUENCY : DAILY;?
     Dates: start: 20100801, end: 20190115

REACTIONS (6)
  - Agitation [None]
  - Confusional state [None]
  - Disorientation [None]
  - Somnolence [None]
  - Hallucination [None]
  - Encephalopathy [None]

NARRATIVE: CASE EVENT DATE: 20190114
